FAERS Safety Report 14062646 (Version 1)
Quarter: 2017Q4

REPORT INFORMATION
  Report Type: Spontaneous
  Country: US (occurrence: US)
  Receive Date: 20171009
  Receipt Date: 20171009
  Transmission Date: 20180321
  Serious: Yes (Other)
  Sender: FDA-Public Use
  Company Number: US-TESARO INC.-TS50-00440-2017USA

PATIENT
  Age: 53 Year
  Sex: Male

DRUGS (2)
  1. ROLAPITANT HYDROCHLORIDE [Suspect]
     Active Substance: ROLAPITANT
     Indication: VOMITING
  2. ROLAPITANT HYDROCHLORIDE [Suspect]
     Active Substance: ROLAPITANT
     Indication: NAUSEA
     Dosage: 180 MG EVERY 21 DAYS
     Route: 048
     Dates: start: 20170202

REACTIONS (13)
  - Fatigue [Not Recovered/Not Resolved]
  - Agranulocytosis [Not Recovered/Not Resolved]
  - Haemoglobin decreased [Not Recovered/Not Resolved]
  - Vein disorder [Not Recovered/Not Resolved]
  - Blood glucose increased [Not Recovered/Not Resolved]
  - Red blood cell count decreased [Not Recovered/Not Resolved]
  - Dehydration [Not Recovered/Not Resolved]
  - Neutrophil count increased [Not Recovered/Not Resolved]
  - Blood osmolarity decreased [Not Recovered/Not Resolved]
  - Anxiety [Not Recovered/Not Resolved]
  - Mean cell volume increased [Not Recovered/Not Resolved]
  - Hyponatraemia [Not Recovered/Not Resolved]
  - Hypertension [Not Recovered/Not Resolved]

NARRATIVE: CASE EVENT DATE: 20170927
